FAERS Safety Report 5156662-7 (Version None)
Quarter: 2006Q4

REPORT INFORMATION
  Report Type: 
  Country: None (occurrence: None)
  Receive Date: 20061115
  Receipt Date: 20061109
  Transmission Date: 20070319
  Serious: Yes (Other)
  Sender: FDA-Public Use
  Company Number: 149699USA

PATIENT
  Age: 72 Year
  Sex: Female

DRUGS (1)
  1. ATENOLOL [Suspect]
     Dosage: 25 MG, ORAL
     Route: 048

REACTIONS (1)
  - RETINAL DETACHMENT [None]
